FAERS Safety Report 6214144-5 (Version None)
Quarter: 2009Q2

REPORT INFORMATION
  Report Type: 
  Country: None (occurrence: None)
  Receive Date: 20090604
  Receipt Date: 20090526
  Transmission Date: 20091009
  Serious: Yes (Other)
  Sender: FDA-Public Use
  Company Number: US-ROCHE-635112

PATIENT
  Sex: Female
  Weight: 49.9 kg

DRUGS (1)
  1. CAPECITABINE [Suspect]
     Indication: COLORECTAL CANCER
     Dosage: 2 IN AM AND 2 IN PM., THE WEEK OF 26 MAY 09 WAS THE OFF CYCLE WEEK.
     Route: 048
     Dates: start: 20090108

REACTIONS (2)
  - LOSS OF CONSCIOUSNESS [None]
  - UNRESPONSIVE TO STIMULI [None]
